FAERS Safety Report 5152419-1 (Version None)
Quarter: 2006Q4

REPORT INFORMATION
  Report Type: 
  Country: None (occurrence: None)
  Receive Date: 20061116
  Receipt Date: 20060509
  Transmission Date: 20070319
  Serious: Yes (Other)
  Sender: FDA-Public Use
  Company Number: US-ELI_LILLY_AND_COMPANY-US200609001518

PATIENT
  Age: 42 Year
  Sex: Male
  Weight: 104.31 kg

DRUGS (1)
  1. ZYPREXA [Suspect]
     Indication: MAJOR DEPRESSION
     Route: 065

REACTIONS (9)
  - BLOOD CHOLESTEROL ABNORMAL [None]
  - BLOOD TRIGLYCERIDES ABNORMAL [None]
  - BLOOD TRIGLYCERIDES INCREASED [None]
  - DIABETES MELLITUS [None]
  - HEPATITIS VIRAL [None]
  - HYPERGLYCAEMIA [None]
  - METABOLIC SYNDROME [None]
  - PANCREATITIS [None]
  - VISION BLURRED [None]
